FAERS Safety Report 9602489 (Version 1)
Quarter: 2013Q4

REPORT INFORMATION
  Report Type: Spontaneous
  Country: FR (occurrence: FR)
  Receive Date: 20131007
  Receipt Date: 20131007
  Transmission Date: 20140711
  Serious: Yes (Disabling)
  Sender: FDA-Public Use
  Company Number: FR-SA-2013SA096188

PATIENT
  Age: 86 Year
  Sex: Male

DRUGS (5)
  1. DANATROL [Suspect]
     Indication: PRODUCT USED FOR UNKNOWN INDICATION
     Route: 048
     Dates: start: 20130705, end: 20130814
  2. LASILIX [Concomitant]
  3. NEBILOX [Concomitant]
  4. DIFFU K [Concomitant]
  5. PLATELETS, HUMAN BLOOD [Concomitant]
     Dosage: DEPENDING ON PLATELETS COUNT (ABOUT 1 TRANSFUSION EVERY 2 WEEKS)

REACTIONS (1)
  - Peripheral sensory neuropathy [Recovering/Resolving]
